FAERS Safety Report 10307351 (Version 1)
Quarter: 2014Q3

REPORT INFORMATION
  Report Type: Spontaneous
  Country: GB (occurrence: GB)
  Receive Date: 20140716
  Receipt Date: 20140716
  Transmission Date: 20150326
  Serious: Yes (Hospitalization)
  Sender: FDA-Public Use
  Company Number: GB-ACCORD-024727

PATIENT
  Age: 40 Year
  Sex: Male

DRUGS (2)
  1. VENLAFAXINE/VENLAFAXINE HYDROCHLORIDE [Concomitant]
  2. QUETIAPINE [Suspect]
     Active Substance: QUETIAPINE
     Indication: PSYCHOTIC DISORDER
     Dosage: AT NIGHT. LONG TERM THERAPY
     Route: 048

REACTIONS (3)
  - Antipsychotic drug level above therapeutic [Recovered/Resolved]
  - Delirium [Recovered/Resolved]
  - Food interaction [Unknown]
